FAERS Safety Report 8293660-9 (Version None)
Quarter: 2012Q2

REPORT INFORMATION
  Report Type: 
  Country: None (occurrence: None)
  Receive Date: 20120418
  Receipt Date: 20120409
  Transmission Date: 20120825
  Serious: No
  Sender: FDA-Public Use
  Company Number: US-BIOGENIDEC-2012BI012625

PATIENT
  Sex: Female

DRUGS (1)
  1. TYSABRI [Suspect]
     Indication: MULTIPLE SCLEROSIS
     Route: 042
     Dates: start: 20100528, end: 20110831

REACTIONS (6)
  - FATIGUE [None]
  - GAIT DISTURBANCE [None]
  - BALANCE DISORDER [None]
  - ASTHENIA [None]
  - HEMIPARESIS [None]
  - HYPOAESTHESIA [None]
